FAERS Safety Report 6512324-2 (Version None)
Quarter: 2009Q4

REPORT INFORMATION
  Report Type: 
  Country: None (occurrence: None)
  Receive Date: 20091222
  Receipt Date: 20090701
  Transmission Date: 20100525
  Serious: No
  Sender: FDA-Public Use
  Company Number: US-ASTRAZENECA-2009UW18322

PATIENT
  Sex: Female

DRUGS (2)
  1. CRESTOR [Suspect]
     Route: 048
  2. FELODIPINE [Suspect]
     Route: 048

REACTIONS (5)
  - ARTHRALGIA [None]
  - CONSTIPATION [None]
  - HEADACHE [None]
  - LETHARGY [None]
  - MUSCLE SPASMS [None]
